FAERS Safety Report 7807162-4 (Version None)
Quarter: 2011Q4

REPORT INFORMATION
  Report Type: 
  Country: None (occurrence: None)
  Receive Date: 20111011
  Receipt Date: 20111004
  Transmission Date: 20120403
  Serious: Yes (Hospitalization)
  Sender: FDA-Public Use
  Company Number: PHHO2011GB15672

PATIENT
  Sex: Male
  Weight: 108 kg

DRUGS (11)
  1. TIOTROPIUM [Concomitant]
     Dosage: 18 MG, PRN
     Dates: start: 20060724
  2. FLUTICASONE PROPIONATE [Concomitant]
     Dosage: 20 MG, QD
     Dates: start: 20070329
  3. ASPIRIN [Concomitant]
     Dosage: 75 MG, QD
     Route: 048
     Dates: start: 20000805
  4. DOXAZOSIN MESYLATE [Concomitant]
     Dosage: 8 MG, QD
     Route: 048
     Dates: start: 20080213
  5. LANSOPRAZOLE [Concomitant]
     Dosage: 30 MG, QD
     Route: 048
  6. TASIGNA [Suspect]
     Indication: CHRONIC MYELOID LEUKAEMIA
     Dosage: 200 MG, BID
     Route: 048
     Dates: start: 20101213, end: 20110908
  7. ATORVASTATIN [Concomitant]
     Dosage: 40 MG, QD
     Route: 048
     Dates: start: 20100727
  8. ALBUTEROL [Concomitant]
     Dosage: UNK
     Dates: start: 20050918
  9. LISINOPRIL [Concomitant]
     Dosage: 20 MG, QD
     Route: 048
     Dates: start: 20090605
  10. GAVISCON [Concomitant]
     Dosage: 30 MTS PRN
     Route: 048
     Dates: start: 20110711
  11. NIFEDIPINE [Concomitant]
     Dosage: 200 MG, QD
     Route: 048
     Dates: start: 20080915

REACTIONS (1)
  - ANGINA UNSTABLE [None]
